FAERS Safety Report 12078653 (Version 1)
Quarter: 2016Q1

REPORT INFORMATION
  Report Type: Spontaneous
  Country: IN (occurrence: IN)
  Receive Date: 20160216
  Receipt Date: 20160216
  Transmission Date: 20160526
  Serious: Yes (Other)
  Sender: FDA-Public Use
  Company Number: IN-CIPLA LTD.-2016IN01056

PATIENT

DRUGS (2)
  1. GEMCITABINE [Suspect]
     Active Substance: GEMCITABINE\GEMCITABINE HYDROCHLORIDE
     Indication: GALLBLADDER CANCER METASTATIC
     Dosage: 1.2 G/M2, DAYS 1 AND 8; ONCE IN 3 WEEKS FOR FOUR CYCLES
     Route: 065
  2. CISPLATIN. [Suspect]
     Active Substance: CISPLATIN
     Indication: GALLBLADDER CANCER METASTATIC
     Dosage: 75 MG/M2, DIVIDED OVER DAYS 1 AND 2; ONCE IN 3 WEEKS FOR FOUR CYCLES
     Route: 065

REACTIONS (4)
  - Vomiting projectile [None]
  - Headache [None]
  - Accelerated hypertension [Unknown]
  - Metastases to meninges [Unknown]
